FAERS Safety Report 12831390 (Version 2)
Quarter: 2016Q4

REPORT INFORMATION
  Report Type: Spontaneous
  Country: US (occurrence: US)
  Receive Date: 20161008
  Receipt Date: 20161008
  Transmission Date: 20170207
  Serious: Yes (Other)
  Sender: FDA-Public Use
  Company Number: US-AMGEN-USASP2016136513

PATIENT
  Sex: Female

DRUGS (1)
  1. PROLIA [Suspect]
     Active Substance: DENOSUMAB
     Indication: OSTEOPOROSIS
     Dosage: UNK UNK, Q6MO
     Route: 065

REACTIONS (6)
  - Bronchiectasis [Unknown]
  - Jaw disorder [Not Recovered/Not Resolved]
  - Immunosuppression [Recovered/Resolved]
  - Mycobacterium avium complex infection [Unknown]
  - Adverse drug reaction [Unknown]
  - Tooth disorder [Not Recovered/Not Resolved]
